FAERS Safety Report 12075165 (Version 1)
Quarter: 2016Q1

REPORT INFORMATION
  Report Type: Spontaneous
  Country: CA (occurrence: CA)
  Receive Date: 20160212
  Receipt Date: 20160212
  Transmission Date: 20160526
  Serious: Yes (Death)
  Sender: FDA-Public Use
  Company Number: CA-HAEMONETICS CORP-1047768

PATIENT
  Age: 79 Year
  Sex: Male

DRUGS (1)
  1. CP2D AND AS-3 NUTRICEL [Suspect]
     Active Substance: ADENINE\CITRIC ACID MONOHYDRATE\DEXTROSE\SODIUM CHLORIDE\SODIUM CITRATE\SODIUM PHOSPHATE
     Indication: ANAEMIA
     Route: 042
     Dates: start: 20160128, end: 20160128

REACTIONS (2)
  - Septic shock [Fatal]
  - Respiratory tract infection bacterial [None]

NARRATIVE: CASE EVENT DATE: 20160129
